FAERS Safety Report 13343478 (Version 1)
Quarter: 2017Q1

REPORT INFORMATION
  Report Type: Spontaneous
  Country: PL (occurrence: PL)
  Receive Date: 20170316
  Receipt Date: 20170316
  Transmission Date: 20170428
  Serious: Yes (Hospitalization, Other)
  Sender: FDA-Public Use
  Company Number: PL-BRISTOL-MYERS SQUIBB COMPANY-BMS-2017-020893

PATIENT
  Age: 59 Year
  Sex: Male

DRUGS (4)
  1. HYDROXYUREA. [Concomitant]
     Active Substance: HYDROXYUREA
     Indication: LEUKAEMIA
     Dosage: 2 G, QD
     Route: 065
  2. CYTARABINE. [Suspect]
     Active Substance: CYTARABINE
     Indication: CHEMOTHERAPY
     Route: 037
  3. SPRYCEL [Suspect]
     Active Substance: DASATINIB
     Indication: LEUKAEMIA
     Dosage: 140 MG, QD
     Route: 065
  4. CYTARABINE. [Suspect]
     Active Substance: CYTARABINE
     Indication: LEUKAEMIA
     Route: 065

REACTIONS (15)
  - General physical health deterioration [Unknown]
  - Pyrexia [Unknown]
  - Escherichia test positive [Unknown]
  - Enterococcal infection [Unknown]
  - Cytomegalovirus infection [Unknown]
  - Haematochezia [Unknown]
  - Platelet count decreased [Unknown]
  - Neutropenia [Unknown]
  - Haematoma [Unknown]
  - Brain oedema [Unknown]
  - Cerebrovascular accident [Unknown]
  - Sepsis [Unknown]
  - Epilepsy [Unknown]
  - Pseudomonas test positive [Unknown]
  - Dehydration [Unknown]
